FAERS Safety Report 11627229 (Version 1)
Quarter: 2015Q4

REPORT INFORMATION
  Report Type: Spontaneous
  Country: US (occurrence: US)
  Receive Date: 20151013
  Receipt Date: 20151013
  Transmission Date: 20160304
  Serious: No
  Sender: FDA-Public Use
  Company Number: US-AMGEN-USASP2015031598

PATIENT
  Age: 20 Year
  Sex: Male

DRUGS (5)
  1. ADRIAMYCIN [Concomitant]
     Active Substance: DOXORUBICIN HYDROCHLORIDE
     Indication: HODGKIN^S DISEASE
     Dosage: UNK
     Dates: start: 20150309
  2. DACARBAZINE. [Concomitant]
     Active Substance: DACARBAZINE
     Indication: HODGKIN^S DISEASE
     Dosage: UNK
     Dates: start: 20150309
  3. BLEOMYCIN [Concomitant]
     Active Substance: BLEOMYCIN SULFATE
     Indication: HODGKIN^S DISEASE
     Dosage: UNK
     Dates: start: 20150309
  4. NEUPOGEN [Suspect]
     Active Substance: FILGRASTIM
     Indication: NEUTROPHIL COUNT ABNORMAL
     Dosage: 480 MCG, UNK
     Route: 065
     Dates: start: 201503
  5. VINBLASTIN [Concomitant]
     Active Substance: VINBLASTINE
     Indication: HODGKIN^S DISEASE
     Dosage: UNK
     Dates: start: 20150309

REACTIONS (1)
  - Incorrect dose administered [Unknown]

NARRATIVE: CASE EVENT DATE: 201503
